FAERS Safety Report 4490714-X (Version None)
Quarter: 2004Q4

REPORT INFORMATION
  Report Type: 
  Country: None (occurrence: None)
  Receive Date: 20041102
  Receipt Date: 20040902
  Transmission Date: 20050328
  Serious: Yes (Life-Threatening, Hospitalization)
  Sender: FDA-Public Use
  Company Number: JP-ROCHE-379390

PATIENT
  Age: 53 Year
  Sex: Female
  Weight: 45 kg

DRUGS (6)
  1. CAPECITABINE [Suspect]
     Indication: BREAST CANCER METASTATIC
     Dosage: ON DAYS ONE THROUGH FOURTEEN OF A TWENTY-ONE DAY CYCLE
     Route: 048
     Dates: start: 20040818, end: 20040830
  2. BROTIZOLAM [Concomitant]
  3. CIPROFLOXACIN HYDROCHLORIDE [Concomitant]
     Dates: start: 20040820, end: 20040825
  4. LOXOPROFEN SODIUM [Concomitant]
     Dates: start: 20040826
  5. METOCLOPRAMIDE [Concomitant]
     Dates: start: 20040826
  6. TEPRENONE [Concomitant]
     Dates: start: 20040826

REACTIONS (16)
  - ACUTE PRERENAL FAILURE [None]
  - ANOREXIA [None]
  - ASCITES [None]
  - BLOOD CREATININE INCREASED [None]
  - DEHYDRATION [None]
  - EATING DISORDER [None]
  - FAECAL OCCULT BLOOD POSITIVE [None]
  - GASTROINTESTINAL ULCER HAEMORRHAGE [None]
  - MALAISE [None]
  - NEPHROGENIC ANAEMIA [None]
  - PYREXIA [None]
  - RENAL FAILURE [None]
  - STOMATITIS [None]
  - THROMBOCYTOPENIA [None]
  - VOMITING [None]
  - WHITE BLOOD CELL COUNT DECREASED [None]
